FAERS Safety Report 20809613 (Version 1)
Quarter: 2022Q2

REPORT INFORMATION
  Report Type: Spontaneous
  Country: US (occurrence: None)
  Receive Date: 20220510
  Receipt Date: 20220510
  Transmission Date: 20220720
  Serious: No
  Sender: FDA-Public Use
  Company Number: None

PATIENT
  Age: 65 Year
  Sex: Female
  Weight: 74.25 kg

DRUGS (15)
  1. PAXLOVID [Suspect]
     Active Substance: NIRMATRELVIR\RITONAVIR
     Indication: COVID-19
     Dosage: OTHER QUANTITY : 3 TABLET(S);?FREQUENCY : EVERY 12 HOURS;?
     Route: 048
     Dates: start: 20220509
  2. LEVOTHYROXINE [Concomitant]
     Active Substance: LEVOTHYROXINE
  3. DEXAMETHASONE [Concomitant]
     Active Substance: DEXAMETHASONE
  4. FLUOROURACIL [Concomitant]
     Active Substance: FLUOROURACIL
  5. LIDOCAINE [Concomitant]
     Active Substance: LIDOCAINE
  6. OMEPRAZOLE [Concomitant]
     Active Substance: OMEPRAZOLE
  7. KEYTRUDA [Concomitant]
     Active Substance: PEMBROLIZUMAB
  8. ALOXI [Concomitant]
     Active Substance: PALONOSETRON HYDROCHLORIDE
  9. kanjuti [Concomitant]
  10. LEUCOVORIN [Concomitant]
     Active Substance: LEUCOVORIN
  11. OXALIPLATIN [Concomitant]
     Active Substance: OXALIPLATIN
  12. VITAMINS [Concomitant]
     Active Substance: VITAMINS
  13. IRON [Concomitant]
     Active Substance: IRON
  14. VITAMIN B12 [Concomitant]
     Active Substance: CYANOCOBALAMIN
  15. ZINC [Concomitant]
     Active Substance: ZINC

REACTIONS (4)
  - Dry mouth [None]
  - Abdominal pain [None]
  - Diarrhoea [None]
  - Taste disorder [None]

NARRATIVE: CASE EVENT DATE: 20220509
